FAERS Safety Report 14243691 (Version 1)
Quarter: 2017Q4

REPORT INFORMATION
  Report Type: Spontaneous
  Country: US (occurrence: US)
  Receive Date: 20171201
  Receipt Date: 20171201
  Transmission Date: 20180321
  Serious: No
  Sender: FDA-Public Use
  Company Number: US-GLAXOSMITHKLINE-US2017182712

PATIENT
  Sex: Female

DRUGS (6)
  1. METFORMIN [Concomitant]
     Active Substance: METFORMIN HYDROCHLORIDE
  2. TANZEUM [Suspect]
     Active Substance: ALBIGLUTIDE
     Indication: TYPE 2 DIABETES MELLITUS
     Dosage: 50 MG, WE
     Route: 058
     Dates: start: 201705
  3. HYDROCHLOROTHIAZIDE. [Concomitant]
     Active Substance: HYDROCHLOROTHIAZIDE
  4. JARDIANCE [Concomitant]
     Active Substance: EMPAGLIFLOZIN
  5. PRAVASTATIN. [Concomitant]
     Active Substance: PRAVASTATIN
  6. LISINOPRIL. [Concomitant]
     Active Substance: LISINOPRIL

REACTIONS (7)
  - Headache [Recovered/Resolved]
  - Feeling abnormal [Unknown]
  - Nausea [Recovered/Resolved]
  - Asthenia [Recovered/Resolved]
  - Malaise [Unknown]
  - Drug dose omission [Unknown]
  - Fatigue [Recovered/Resolved]

NARRATIVE: CASE EVENT DATE: 2017
